FAERS Safety Report 9406423 (Version 1)
Quarter: 2013Q3

REPORT INFORMATION
  Report Type: Spontaneous
  Country: IN (occurrence: US)
  Receive Date: 20130718
  Receipt Date: 20130718
  Transmission Date: 20140515
  Serious: No
  Sender: FDA-Public Use
  Company Number: IN-009507513-1307IND008504

PATIENT
  Age: 41 Year
  Sex: Male

DRUGS (1)
  1. SAPHRIS [Suspect]
     Indication: BIPOLAR DISORDER
     Dosage: 5 MG, QD
     Route: 060

REACTIONS (3)
  - Restlessness [Unknown]
  - Irritability [Unknown]
  - Fatigue [Unknown]
